FAERS Safety Report 9850085 (Version 1)
Quarter: 2014Q1

REPORT INFORMATION
  Report Type: Spontaneous
  Country: US (occurrence: None)
  Receive Date: 20140124
  Receipt Date: 20140124
  Transmission Date: 20141002
  Serious: Yes (Other)
  Sender: FDA-Public Use
  Company Number: None

PATIENT
  Age: 87 Year
  Sex: Female
  Weight: 54.43 kg

DRUGS (10)
  1. RECLAPSE [Suspect]
     Indication: OSTEOPOROSIS
     Route: 041
     Dates: start: 20130109, end: 20130109
  2. DIOVAN [Concomitant]
  3. PREDNISONE [Concomitant]
  4. OMNEPRAZOLE [Concomitant]
  5. BABY ASPIRIN [Concomitant]
  6. VITAMINS [Concomitant]
  7. VIT. B COMPLEX [Concomitant]
  8. VIT E [Concomitant]
  9. CITRICAL [Concomitant]
  10. FISH OIL [Concomitant]

REACTIONS (4)
  - Chills [None]
  - Pyrexia [None]
  - Bone pain [None]
  - Arthralgia [None]
